FAERS Safety Report 22210887 (Version 2)
Quarter: 2023Q2

REPORT INFORMATION
  Report Type: Spontaneous
  Country: NL (occurrence: NL)
  Receive Date: 20230414
  Receipt Date: 20230526
  Transmission Date: 20230722
  Serious: Yes (Other)
  Sender: FDA-Public Use
  Company Number: NL-ROCHE-3308208

PATIENT
  Age: 42 Year
  Sex: Female

DRUGS (5)
  1. PREDNISOLONE [Suspect]
     Active Substance: PREDNISOLONE
     Indication: Thrombotic thrombocytopenic purpura
     Dosage: UNK
     Route: 065
  2. OBINUTUZUMAB [Suspect]
     Active Substance: OBINUTUZUMAB
     Indication: Thrombotic thrombocytopenic purpura
     Dosage: 1000 MILLIGRAM
     Route: 065
     Dates: start: 20230324
  3. OBINUTUZUMAB [Suspect]
     Active Substance: OBINUTUZUMAB
     Dosage: 100 MILLIGRAM
     Route: 065
     Dates: start: 20230316
  4. OBINUTUZUMAB [Suspect]
     Active Substance: OBINUTUZUMAB
     Dosage: 900 MILLIGRAM
     Route: 065
     Dates: start: 20230317
  5. RITUXIMAB [Suspect]
     Active Substance: RITUXIMAB
     Indication: Thrombotic thrombocytopenic purpura
     Dosage: 375 MILLIGRAM/SQ. METER ( WEEKLY, INTENDED FOR 4 WEEKS, STOPPED AFTER 2 DOSES, MOST RECENT DOSE ADMI
     Route: 065
     Dates: start: 20140502

REACTIONS (2)
  - Serum sickness [Recovered/Resolved]
  - Off label use [Unknown]

NARRATIVE: CASE EVENT DATE: 20140512
